FAERS Safety Report 9342729 (Version 3)
Quarter: 2013Q4

REPORT INFORMATION
  Report Type: Spontaneous
  Country: JP (occurrence: JP)
  Receive Date: 20130611
  Receipt Date: 20131125
  Transmission Date: 20140711
  Serious: Yes (Hospitalization)
  Sender: FDA-Public Use
  Company Number: JP-JNJFOC-20130603826

PATIENT
  Age: 61 Year
  Sex: Male
  Weight: 62 kg

DRUGS (3)
  1. REMICADE [Suspect]
     Indication: PSORIASIS
     Route: 042
     Dates: start: 20130408
  2. REMICADE [Suspect]
     Indication: PSORIASIS
     Dosage: THIRD DOSE
     Route: 042
     Dates: start: 20130501
  3. REMICADE [Suspect]
     Indication: PSORIASIS
     Route: 042
     Dates: start: 20130325

REACTIONS (2)
  - Drug eruption [Recovering/Resolving]
  - Pneumonia [Recovering/Resolving]
